FAERS Safety Report 10049989 (Version 1)
Quarter: 2014Q2

REPORT INFORMATION
  Report Type: Spontaneous
  Country: GB (occurrence: GB)
  Receive Date: 20140401
  Receipt Date: 20140401
  Transmission Date: 20141212
  Serious: Yes (Other)
  Sender: FDA-Public Use
  Company Number: GB-TEVA-472451ISR

PATIENT
  Age: 67 Year
  Sex: Male
  Weight: 71 kg

DRUGS (5)
  1. LANSOPRAZOLE [Suspect]
     Indication: PROPHYLAXIS AGAINST GASTROINTESTINAL ULCER
     Route: 048
     Dates: start: 20111024, end: 201112
  2. ATORVASTATIN [Concomitant]
     Indication: PROPHYLAXIS
  3. ASPIRIN [Concomitant]
     Indication: PROPHYLAXIS
  4. CARDICOR [Concomitant]
     Indication: PROPHYLAXIS
  5. RAMIPRIL [Concomitant]
     Indication: PROPHYLAXIS

REACTIONS (1)
  - Diarrhoea [Recovered/Resolved]
